FAERS Safety Report 10733394 (Version 4)
Quarter: 2016Q1

REPORT INFORMATION
  Report Type: Report from Study
  Country: US (occurrence: US)
  Receive Date: 20150123
  Receipt Date: 20160129
  Transmission Date: 20160525
  Serious: Yes (Other)
  Sender: FDA-Public Use
  Company Number: US-SA-2014SA012390

PATIENT
  Age: 59 Year
  Sex: Male
  Weight: 210 kg

DRUGS (20)
  1. FLOMAX [Concomitant]
     Active Substance: TAMSULOSIN HYDROCHLORIDE
     Indication: URINARY RETENTION
  2. TERAZOSIN [Concomitant]
     Active Substance: TERAZOSIN\TERAZOSIN HYDROCHLORIDE
     Indication: URINARY TRACT DISORDER
     Dosage: STRENGHT: 5 MG
  3. LUMIGAN [Concomitant]
     Active Substance: BIMATOPROST
     Dosage: EYE DROPS
  4. RELAFEN [Concomitant]
     Active Substance: NABUMETONE
     Dosage: AS NEEDED
  5. TERAZOSIN [Concomitant]
     Active Substance: TERAZOSIN\TERAZOSIN HYDROCHLORIDE
     Indication: URINARY RETENTION
  6. WELLBUTRIN [Concomitant]
     Active Substance: BUPROPION HYDROCHLORIDE
  7. ASPIRIN. [Concomitant]
     Active Substance: ASPIRIN
  8. PRILOSEC [Concomitant]
     Active Substance: OMEPRAZOLE MAGNESIUM
  9. AUBAGIO [Suspect]
     Active Substance: TERIFLUNOMIDE
     Indication: MULTIPLE SCLEROSIS
     Route: 048
     Dates: start: 2013
  10. VITAMIN D [Concomitant]
     Active Substance: CHOLECALCIFEROL
     Indication: MULTIPLE SCLEROSIS
     Route: 042
  11. DICYCLOMINE [Concomitant]
     Active Substance: DICYCLOMINE HYDROCHLORIDE
  12. AUBAGIO [Suspect]
     Active Substance: TERIFLUNOMIDE
     Indication: MULTIPLE SCLEROSIS
     Route: 048
     Dates: start: 2013
  13. AUBAGIO [Suspect]
     Active Substance: TERIFLUNOMIDE
     Indication: MULTIPLE SCLEROSIS
     Route: 048
     Dates: start: 20140116
  14. AUBAGIO [Suspect]
     Active Substance: TERIFLUNOMIDE
     Indication: MULTIPLE SCLEROSIS
     Route: 048
     Dates: start: 20140612
  15. FLAGYL [Concomitant]
     Active Substance: METRONIDAZOLE\METRONIDAZOLE HYDROCHLORIDE
     Dosage: AS NEEDED
  16. VITAMIN C [Concomitant]
     Active Substance: ASCORBIC ACID
  17. FINASTERIDE. [Concomitant]
     Active Substance: FINASTERIDE
     Indication: URINARY TRACT DISORDER
     Dosage: STRENGTH: 5 MG
  18. ADDERALL [Concomitant]
     Active Substance: AMPHETAMINE ASPARTATE\AMPHETAMINE SULFATE\DEXTROAMPHETAMINE SACCHARATE\DEXTROAMPHETAMINE SULFATE
  19. ZYRTEC [Concomitant]
     Active Substance: CETIRIZINE HYDROCHLORIDE
     Indication: MULTIPLE ALLERGIES
  20. XANAX [Concomitant]
     Active Substance: ALPRAZOLAM
     Dosage: AS NEEDED

REACTIONS (19)
  - Inappropriate schedule of drug administration [Unknown]
  - Balance disorder [Recovering/Resolving]
  - Muscle spasms [Unknown]
  - Gait disturbance [Recovering/Resolving]
  - Sinus disorder [Unknown]
  - Musculoskeletal stiffness [Unknown]
  - Multiple sclerosis relapse [Recovering/Resolving]
  - Diarrhoea [Recovered/Resolved]
  - Hypertension [Unknown]
  - Asthenia [Recovering/Resolving]
  - Depression [Unknown]
  - Fatigue [Unknown]
  - Oropharyngeal pain [Not Recovered/Not Resolved]
  - Cholecystectomy [Unknown]
  - Nausea [Recovered/Resolved]
  - Hot flush [Unknown]
  - Nasopharyngitis [Not Recovered/Not Resolved]
  - Cough [Unknown]
  - Dysphonia [Recovering/Resolving]

NARRATIVE: CASE EVENT DATE: 2014
